FAERS Safety Report 20779084 (Version 1)
Quarter: 2022Q2

REPORT INFORMATION
  Report Type: Spontaneous
  Country: US (occurrence: US)
  Receive Date: 20220503
  Receipt Date: 20220503
  Transmission Date: 20220721
  Serious: No
  Sender: FDA-Public Use
  Company Number: US-PFIZER INC-202101758330

PATIENT
  Age: 19 Year
  Sex: Female

DRUGS (2)
  1. AZITHROMYCIN [Suspect]
     Active Substance: AZITHROMYCIN
     Dosage: UNK DF, (ESTIMATED DOSAGE OF ABOUT 1000MG)
     Dates: start: 20211104
  2. PLAN B [Suspect]
     Active Substance: LEVONORGESTREL
     Indication: Contraception
     Dosage: 1.5 MG, SINGLE (1.5MG TABLET TAKEN BY MOUTH ONE DOSE)
     Route: 048
     Dates: start: 20211103, end: 20211103

REACTIONS (3)
  - Oropharyngeal pain [Unknown]
  - Breast tenderness [Unknown]
  - Vaginal haemorrhage [Unknown]

NARRATIVE: CASE EVENT DATE: 20211104
